FAERS Safety Report 7261822-5 (Version None)
Quarter: 2011Q1

REPORT INFORMATION
  Report Type: 
  Country: None (occurrence: None)
  Receive Date: 20110130
  Receipt Date: 20101201
  Transmission Date: 20110831
  Serious: No
  Sender: FDA-Public Use
  Company Number: US-ABBOTT-10P-163-0688685-00

PATIENT
  Sex: Female

DRUGS (1)
  1. HUMIRA [Suspect]
     Indication: COLITIS ULCERATIVE
     Route: 058
     Dates: start: 20090101

REACTIONS (7)
  - INJECTION SITE RASH [None]
  - INJECTION SITE ERYTHEMA [None]
  - INFLUENZA LIKE ILLNESS [None]
  - FATIGUE [None]
  - INJECTION SITE PRURITUS [None]
  - FREQUENT BOWEL MOVEMENTS [None]
  - INJECTION SITE URTICARIA [None]
